FAERS Safety Report 4619368-6 (Version None)
Quarter: 2005Q2

REPORT INFORMATION
  Report Type: 
  Country: None (occurrence: None)
  Receive Date: 20050325
  Receipt Date: 20041208
  Transmission Date: 20051028
  Serious: No
  Sender: FDA-Public Use
  Company Number: 0204004

PATIENT
  Age: 78 Year
  Sex: Female

DRUGS (4)
  1. DEPODUR [Suspect]
     Indication: POST PROCEDURAL PAIN
     Dosage: (15 MG, ONCE), EPIDURAL
     Route: 008
  2. VICODIN [Concomitant]
  3. PERCOCET [Concomitant]
  4. DILAUDID [Concomitant]

REACTIONS (2)
  - NAUSEA [None]
  - RESPIRATORY DEPRESSION [None]
